FAERS Safety Report 5816223-0 (Version None)
Quarter: 2008Q3

REPORT INFORMATION
  Report Type: 
  Country: None (occurrence: None)
  Receive Date: 20080721
  Receipt Date: 20080715
  Transmission Date: 20090109
  Serious: Yes (Other)
  Sender: FDA-Public Use
  Company Number: B0529931A

PATIENT
  Age: 53 Year
  Sex: Female

DRUGS (6)
  1. AVANDIA [Suspect]
     Indication: DIABETES MELLITUS
     Dosage: 4MG PER DAY
     Route: 048
     Dates: start: 20070830, end: 20080101
  2. OXIS TURBUHALER [Concomitant]
     Route: 055
  3. PULMICORT [Concomitant]
     Route: 055
  4. OMEPRAZOLE [Concomitant]
     Route: 065
  5. ATENOLOL [Concomitant]
     Route: 065
  6. METFORMIN HCL [Concomitant]
     Route: 065

REACTIONS (2)
  - PAPILLOEDEMA [None]
  - VISUAL IMPAIRMENT [None]
